FAERS Safety Report 23681834 (Version 1)
Quarter: 2024Q1

REPORT INFORMATION
  Report Type: Spontaneous
  Country: IE (occurrence: IE)
  Receive Date: 20240328
  Receipt Date: 20240328
  Transmission Date: 20240409
  Serious: Yes (Hospitalization, Other)
  Sender: FDA-Public Use
  Company Number: None

PATIENT
  Age: 61 Year
  Sex: Male
  Weight: 95 kg

DRUGS (23)
  1. DAPTOMYCIN [Suspect]
     Active Substance: DAPTOMYCIN
     Indication: Abdominal abscess
     Dosage: 10MG/KG
     Dates: start: 20240124, end: 20240211
  2. GENTAMICIN [Concomitant]
     Active Substance: GENTAMICIN
     Indication: Diverticular perforation
     Dates: start: 20240107, end: 20240109
  3. MEROPENEM [Concomitant]
     Active Substance: MEROPENEM
     Indication: Infection
     Dates: start: 20240209
  4. METRONIDAZOLE [Concomitant]
     Active Substance: METRONIDAZOLE
     Indication: Infection
     Dosage: 400MG TDS PO
     Dates: start: 20240208, end: 20240213
  5. OXYCODONE HYDROCHLORIDE [Concomitant]
     Active Substance: OXYCODONE HYDROCHLORIDE
     Indication: Pain
     Dosage: 5MG PRN UP TO QDS PO
     Dates: start: 20240208, end: 20240208
  6. DEXKETOPROFEN TROMETAMOL [Concomitant]
     Active Substance: DEXKETOPROFEN TROMETAMOL
     Indication: Pain
     Dosage: 50MG UP TO TDS PRN IV
     Dates: start: 20240106, end: 20240108
  7. ACETAMINOPHEN [Concomitant]
     Active Substance: ACETAMINOPHEN
     Indication: Pain
     Dates: start: 20240106
  8. ERGOCALCIFEROL\PHYTONADIONE\RETINOL\TOCOPHEROL [Concomitant]
     Active Substance: ERGOCALCIFEROL\PHYTONADIONE\RETINOL\TOCOPHEROL
     Dates: start: 20240107, end: 20240129
  9. ONDANSETRON [Concomitant]
     Active Substance: ONDANSETRON
     Indication: Nausea
     Dosage: 4MG UP TO TDS PRN PO/IV
     Dates: start: 20240109, end: 20240116
  10. CASPOFUNGIN ACETATE [Concomitant]
     Active Substance: CASPOFUNGIN ACETATE
     Indication: Infection
     Dates: start: 20240119
  11. ERTAPENEM [Concomitant]
     Active Substance: ERTAPENEM
     Indication: Infection
     Dates: start: 20240207, end: 20240208
  12. ENOXAPARIN SODIUM [Concomitant]
     Active Substance: ENOXAPARIN SODIUM
     Indication: Thrombosis prophylaxis
     Dates: start: 20240106
  13. ASCORBIC ACID\VITAMIN B COMPLEX [Concomitant]
     Active Substance: ASCORBIC ACID\VITAMIN B COMPLEX
     Dates: start: 20240107, end: 20240112
  14. PIPERACILLIN AND TAZOBACTAM [Concomitant]
     Active Substance: PIPERACILLIN SODIUM\TAZOBACTAM SODIUM
     Indication: Diverticular perforation
     Dates: start: 20240107, end: 20240207
  15. MELATONIN [Concomitant]
     Active Substance: MELATONIN
     Indication: Sleep disorder therapy
     Dosage: 2MG PRN NOCTE
     Dates: start: 20240110
  16. VITAMINS [Concomitant]
     Active Substance: VITAMINS
     Dates: start: 20240107, end: 20240129
  17. ESOMEPRAZOLE [Concomitant]
     Active Substance: ESOMEPRAZOLE
     Indication: Prophylaxis against gastrointestinal ulcer
     Dates: start: 20240106
  18. LERCANIDIPINE [Concomitant]
     Active Substance: LERCANIDIPINE
     Indication: Hypertension
     Dates: start: 20240106
  19. MINERALS [Concomitant]
     Active Substance: MINERALS
     Dates: start: 20240107, end: 20240129
  20. HYDROCORTISONE [Concomitant]
     Active Substance: HYDROCORTISONE
     Dates: start: 20240211
  21. LINEZOLID [Concomitant]
     Active Substance: LINEZOLID
     Indication: Infection
     Dates: start: 20240211, end: 20240213
  22. METRONIDAZOLE [Concomitant]
     Active Substance: METRONIDAZOLE
     Indication: Infection
     Dosage: 400MG TDS PO
     Dates: start: 20240120, end: 20240208
  23. LINEZOLID [Concomitant]
     Active Substance: LINEZOLID
     Indication: Infection
     Dates: start: 20240120, end: 20240123

REACTIONS (6)
  - Pneumonia [Recovering/Resolving]
  - Lung consolidation [Unknown]
  - Tachycardia [Unknown]
  - Eosinophilic pneumonia [Recovering/Resolving]
  - Pyrexia [Unknown]
  - Dyspnoea [Unknown]

NARRATIVE: CASE EVENT DATE: 20240209
